FAERS Safety Report 9763173 (Version 1)
Quarter: 2013Q4

REPORT INFORMATION
  Report Type: Spontaneous
  Country: US (occurrence: US)
  Receive Date: 20131216
  Receipt Date: 20131216
  Transmission Date: 20140711
  Serious: No
  Sender: FDA-Public Use
  Company Number: US-BIOGENIDEC-2013BI106007

PATIENT
  Sex: Female

DRUGS (5)
  1. TECFIDERA [Suspect]
     Indication: PRODUCT USED FOR UNKNOWN INDICATION
     Route: 048
  2. MYSOLINE [Concomitant]
  3. LEVOTHYROXIN [Concomitant]
  4. BUPROPION [Concomitant]
  5. VITAMIN D [Concomitant]

REACTIONS (5)
  - Anxiety [Unknown]
  - Increased appetite [Unknown]
  - Headache [Unknown]
  - Nausea [Unknown]
  - Vomiting [Unknown]
